FAERS Safety Report 6218613-3 (Version None)
Quarter: 2009Q2

REPORT INFORMATION
  Report Type: 
  Country: None (occurrence: None)
  Receive Date: 20090608
  Receipt Date: 20090601
  Transmission Date: 20091009
  Serious: Yes (Other)
  Sender: FDA-Public Use
  Company Number: US-AVENTIS-200914691US

PATIENT
  Sex: Male

DRUGS (9)
  1. LANTUS [Suspect]
     Dosage: DOSE: 4-5
     Route: 058
     Dates: start: 20090101
  2. LANTUS [Suspect]
     Route: 058
     Dates: start: 20090101
  3. COUMADIN [Concomitant]
     Dates: start: 20090101
  4. COREG [Concomitant]
     Dosage: DOSE QUANTITY: 3.125
     Dates: start: 20090101
  5. DIOVANE [Concomitant]
     Dates: start: 20090101
  6. ASPIRIN [Concomitant]
     Dates: start: 20090101
  7. SIMVASTATIN [Concomitant]
     Dates: start: 20090101
  8. CALCIUM ACETATE [Concomitant]
     Dosage: DOSE: 2 TABLETS WITH EVERY MEAL
     Dates: start: 20090101
  9. PREDNISONE [Concomitant]
     Dosage: DOSE: UNK

REACTIONS (2)
  - ENDOCARDITIS [None]
  - HYPOGLYCAEMIA [None]
